FAERS Safety Report 8241017-9 (Version None)
Quarter: 2012Q1

REPORT INFORMATION
  Report Type: 
  Country: None (occurrence: None)
  Receive Date: 20120328
  Receipt Date: 20120322
  Transmission Date: 20120608
  Serious: Yes (Hospitalization)
  Sender: FDA-Public Use
  Company Number: US-MERCK-1203USA02977

PATIENT
  Age: 82 Year
  Sex: Male

DRUGS (3)
  1. JANUVIA [Suspect]
     Indication: DIABETES MELLITUS
     Route: 048
     Dates: start: 20120314
  2. DIHYDROCODEINE PHOSPHATE [Concomitant]
     Route: 065
  3. DOXEPIN HYDROCHLORIDE [Concomitant]
     Route: 065

REACTIONS (3)
  - HAEMORRHAGE [None]
  - ABDOMINAL PAIN UPPER [None]
  - DIARRHOEA [None]
